FAERS Safety Report 15090795 (Version 1)
Quarter: 2018Q2

REPORT INFORMATION
  Report Type: Spontaneous
  Country: SE (occurrence: SE)
  Receive Date: 20180629
  Receipt Date: 20180629
  Transmission Date: 20180711
  Serious: Yes (Congenital Anomaly)
  Sender: FDA-Public Use
  Company Number: SE-JNJFOC-20180629964

PATIENT

DRUGS (1)
  1. OXYBUTYNIN HYDROCHLORIDE [Suspect]
     Active Substance: OXYBUTYNIN CHLORIDE
     Indication: HYPERHIDROSIS
     Route: 064
     Dates: start: 20171201, end: 20180122

REACTIONS (2)
  - Foetal exposure during pregnancy [Unknown]
  - Skull malformation [Unknown]

NARRATIVE: CASE EVENT DATE: 20171201
